FAERS Safety Report 15302988 (Version 6)
Quarter: 2020Q4

REPORT INFORMATION
  Report Type: Report from Study
  Country: US (occurrence: US)
  Receive Date: 20180821
  Receipt Date: 20201001
  Transmission Date: 20210113
  Serious: No
  Sender: FDA-Public Use
  Company Number: PHEH2018US034418

PATIENT
  Sex: Male

DRUGS (1)
  1. COSENTYX [Suspect]
     Active Substance: SECUKINUMAB
     Indication: PSORIASIS
     Dosage: 300 MG (2 PENS) AT WEEK 4, THEN 300 MG (2 PENS) EVERY 4 WEEKS THEREAFTER)
     Route: 058

REACTIONS (6)
  - Hypoacusis [Unknown]
  - Infection [Unknown]
  - Pain [Unknown]
  - Dizziness [Unknown]
  - Arthralgia [Unknown]
  - Feeling drunk [Unknown]
